FAERS Safety Report 5643980-9 (Version None)
Quarter: 2008Q1

REPORT INFORMATION
  Report Type: 
  Country: None (occurrence: None)
  Receive Date: 20080131
  Receipt Date: 20071222
  Transmission Date: 20080703
  Serious: No
  Sender: FDA-Public Use
  Company Number: 163-21880-07121314

PATIENT
  Age: 85 Year
  Sex: Female

DRUGS (1)
  1. REVLIMID [Suspect]
     Indication: MYELODYSPLASTIC SYNDROME
     Dosage: 5 MG,1 IN 1 D, ORAL
     Route: 048
     Dates: start: 20071106, end: 20071101

REACTIONS (3)
  - BLOOD COUNT ABNORMAL [None]
  - DIZZINESS [None]
  - MUSCULAR WEAKNESS [None]
